FAERS Safety Report 20804306 (Version 2)
Quarter: 2022Q3

REPORT INFORMATION
  Report Type: Spontaneous
  Country: MX (occurrence: MX)
  Receive Date: 20220509
  Receipt Date: 20220701
  Transmission Date: 20221026
  Serious: Yes (Other)
  Sender: FDA-Public Use
  Company Number: MX-NOVOPROD-913927

PATIENT
  Age: 59 Year
  Sex: Female

DRUGS (6)
  1. XULTOPHY 100/3.6 [Suspect]
     Active Substance: INSULIN DEGLUDEC\LIRAGLUTIDE
     Indication: Type 2 diabetes mellitus
     Dosage: 20 DF, QD(DOSE ADMINISTERED EACH NIGHT  ^DOSE STEPS^)
     Route: 065
     Dates: start: 2021
  2. TELMISARTAN [Concomitant]
     Active Substance: TELMISARTAN
     Indication: Hypertension
     Dosage: 40 MG, BID
  3. ATORVASTATIN [Concomitant]
     Active Substance: ATORVASTATIN
     Indication: Blood cholesterol abnormal
     Dosage: HALF TABLET DAILY
  4. ATORVASTATIN [Concomitant]
     Active Substance: ATORVASTATIN
     Indication: Blood triglycerides abnormal
  5. ALLOPURINOL [Concomitant]
     Active Substance: ALLOPURINOL
     Indication: Blood triglycerides abnormal
     Dosage: 30 MG (HALF TABLET DAILY)
  6. ALLOPURINOL [Concomitant]
     Active Substance: ALLOPURINOL
     Indication: Blood cholesterol abnormal

REACTIONS (5)
  - Feeling abnormal [Unknown]
  - Blood glucose increased [Recovering/Resolving]
  - Product leakage [Unknown]
  - Device defective [Unknown]
  - Device breakage [Recovering/Resolving]

NARRATIVE: CASE EVENT DATE: 20220422
